FAERS Safety Report 4468358-5 (Version None)
Quarter: 2004Q4

REPORT INFORMATION
  Report Type: 
  Country: None (occurrence: None)
  Receive Date: 20041006
  Receipt Date: 20040924
  Transmission Date: 20050328
  Serious: Yes (Other)
  Sender: FDA-Public Use
  Company Number: 2004069822

PATIENT
  Sex: Female

DRUGS (2)
  1. SUDAFED (PSEUDOEHEDRINE) [Suspect]
     Dosage: 2 OR MOR TABS QD, ORAL
     Route: 048
  2. FEXOFENADINE HYDROCHLORIDE [Suspect]

REACTIONS (5)
  - ABNORMAL BEHAVIOUR [None]
  - AGGRESSION [None]
  - DRUG DEPENDENCE [None]
  - IRRITABILITY [None]
  - WEIGHT DECREASED [None]
